FAERS Safety Report 11670678 (Version 1)
Quarter: 2015Q4

REPORT INFORMATION
  Report Type: Spontaneous
  Country: US (occurrence: US)
  Receive Date: 20151027
  Receipt Date: 20151027
  Transmission Date: 20160304
  Serious: No
  Sender: FDA-Public Use
  Company Number: US-ELI_LILLY_AND_COMPANY-US201005003151

PATIENT
  Sex: Female

DRUGS (10)
  1. ZITHROMAX [Concomitant]
     Active Substance: AZITHROMYCIN DIHYDRATE
     Indication: HYPERSENSITIVITY
  2. SYNTHROID [Concomitant]
     Active Substance: LEVOTHYROXINE SODIUM
     Indication: HYPOTHYROIDISM
  3. ZOCOR [Concomitant]
     Active Substance: SIMVASTATIN
     Indication: BLOOD CHOLESTEROL INCREASED
     Dosage: 40 MG, DAILY (1/D)
  4. CALCIUM [Concomitant]
     Active Substance: CALCIUM
  5. VITAMIN D [Concomitant]
     Active Substance: CHOLECALCIFEROL
  6. METHOCARBAMOL. [Concomitant]
     Active Substance: METHOCARBAMOL
     Indication: SCIATICA
  7. FORTEO [Suspect]
     Active Substance: TERIPARATIDE
     Indication: OSTEOPOROSIS
     Dosage: 20 UG, DAILY (1/D)
     Dates: start: 20100413, end: 20100510
  8. METAMUCIL [Concomitant]
     Active Substance: PLANTAGO SEED
     Indication: DIVERTICULUM
  9. ADVIL [Concomitant]
     Active Substance: IBUPROFEN
     Indication: SCIATICA
  10. CITRACAL [Concomitant]
     Active Substance: CALCIUM CITRATE

REACTIONS (7)
  - Peripheral swelling [Not Recovered/Not Resolved]
  - Anxiety [Unknown]
  - Dysgeusia [Unknown]
  - Feeling abnormal [Unknown]
  - Nausea [Not Recovered/Not Resolved]
  - Decreased appetite [Unknown]
  - Varicose vein [Unknown]

NARRATIVE: CASE EVENT DATE: 2010
